FAERS Safety Report 12214599 (Version 2)
Quarter: 2016Q1

REPORT INFORMATION
  Report Type: Spontaneous
  Country: SE (occurrence: SE)
  Receive Date: 20160328
  Receipt Date: 20160328
  Transmission Date: 20160526
  Serious: Yes (Hospitalization)
  Sender: FDA-Public Use
  Company Number: SE-SA-2016SA059826

PATIENT
  Age: 75 Year
  Sex: Male

DRUGS (12)
  1. APROVEL [Suspect]
     Active Substance: IRBESARTAN
     Indication: HYPERTENSION
     Route: 048
     Dates: start: 20151104, end: 20160301
  2. LOCOID [Concomitant]
     Active Substance: HYDROCORTISONE BUTYRATE
     Dates: start: 20160215
  3. FOLACIN [Concomitant]
     Active Substance: FOLIC ACID
  4. CANODERM [Concomitant]
     Dates: start: 20160226
  5. DESLORATADINE. [Concomitant]
     Active Substance: DESLORATADINE
     Dates: start: 20160212
  6. SALURES [Concomitant]
     Active Substance: BENDROFLUMETHIAZIDE
  7. ATORVASTATIN [Concomitant]
     Active Substance: ATORVASTATIN
  8. NEOTIGASON [Concomitant]
     Active Substance: ACITRETIN
     Dates: start: 20160217, end: 20160301
  9. AMLODIPINE [Concomitant]
     Active Substance: AMLODIPINE BESYLATE
  10. ALLOPURINOL. [Concomitant]
     Active Substance: ALLOPURINOL
  11. BEHEPAN [Concomitant]
     Active Substance: HYDROXOCOBALAMIN
  12. METOPROLOL. [Concomitant]
     Active Substance: METOPROLOL

REACTIONS (2)
  - Exfoliative rash [Recovered/Resolved]
  - Blister [Recovered/Resolved]

NARRATIVE: CASE EVENT DATE: 20160303
